FAERS Safety Report 5672308-3 (Version None)
Quarter: 2008Q1

REPORT INFORMATION
  Report Type: 
  Country: None (occurrence: None)
  Receive Date: 20080317
  Receipt Date: 20080307
  Transmission Date: 20080703
  Serious: Yes (Hospitalization)
  Sender: FDA-Public Use
  Company Number: 163-21880-08030608

PATIENT
  Age: 61 Year
  Sex: Male
  Weight: 65.7716 kg

DRUGS (4)
  1. REVLIMID [Suspect]
     Indication: MULTIPLE MYELOMA
     Dosage: 25 MG, DAILY X 21 DAYS, ORAL; 15 MG, 1 IN 1 D, ORAL
     Route: 048
     Dates: start: 20080125, end: 20080201
  2. REVLIMID [Suspect]
     Indication: MULTIPLE MYELOMA
     Dosage: 25 MG, DAILY X 21 DAYS, ORAL; 15 MG, 1 IN 1 D, ORAL
     Route: 048
     Dates: start: 20080227
  3. TESTOSTERONE [Concomitant]
  4. ACYCLOVIR [Concomitant]

REACTIONS (3)
  - DIPLOPIA [None]
  - DRUG INEFFECTIVE [None]
  - NEUROPATHY PERIPHERAL [None]
